FAERS Safety Report 8574542-1 (Version None)
Quarter: 2012Q3

REPORT INFORMATION
  Report Type: 
  Country: None (occurrence: None)
  Receive Date: 20120806
  Receipt Date: 20120730
  Transmission Date: 20120928
  Serious: Yes (Other)
  Sender: FDA-Public Use
  Company Number: MX-UCBSA-062737

PATIENT
  Age: 24 Year
  Sex: Female
  Weight: 90 kg

DRUGS (2)
  1. VALPROATE SODIUM [Concomitant]
     Indication: EPILEPSY
     Route: 048
     Dates: start: 20090210
  2. VIMPAT [Suspect]
     Indication: EPILEPSY
     Route: 048
     Dates: start: 20111204, end: 20120705

REACTIONS (2)
  - TONGUE INJURY [None]
  - GRAND MAL CONVULSION [None]
